FAERS Safety Report 6887894-5 (Version None)
Quarter: 2010Q3

REPORT INFORMATION
  Report Type: 
  Country: None (occurrence: None)
  Receive Date: 20100730
  Receipt Date: 20100723
  Transmission Date: 20110219
  Serious: Yes (Death)
  Sender: FDA-Public Use
  Company Number: PL-ELI_LILLY_AND_COMPANY-PL201007006104

PATIENT
  Sex: Female
  Weight: 55 kg

DRUGS (2)
  1. GEMCITABINE HCL [Suspect]
     Indication: NON-SMALL CELL LUNG CANCER
     Dosage: 1425 MG, UNKNOWN
     Route: 065
     Dates: start: 20100507
  2. CISPLATIN [Suspect]
     Indication: NON-SMALL CELL LUNG CANCER
     Dosage: 85 MG, UNKNOWN
     Route: 065
     Dates: start: 20100507

REACTIONS (1)
  - HAEMORRHAGE [None]
